FAERS Safety Report 18794759 (Version 1)
Quarter: 2021Q1

REPORT INFORMATION
  Report Type: Spontaneous
  Country: ES (occurrence: ES)
  Receive Date: 20210127
  Receipt Date: 20210127
  Transmission Date: 20210419
  Serious: Yes (Death)
  Sender: FDA-Public Use
  Company Number: ES-MYLANLABS-2021M1005184

PATIENT
  Age: 55 Year
  Sex: Female

DRUGS (2)
  1. ALMOTRIPTAN. [Interacting]
     Active Substance: ALMOTRIPTAN
     Indication: MIGRAINE
     Dosage: 12.5 MILLIGRAM
     Route: 048
     Dates: start: 20200102, end: 20201025
  2. SERTRALINE [Suspect]
     Active Substance: SERTRALINE HYDROCHLORIDE
     Indication: DEPRESSION
     Dosage: 50 MILLIGRAM, BID
     Route: 048
     Dates: start: 20200102, end: 20201025

REACTIONS (2)
  - Drug interaction [Unknown]
  - Serotonin syndrome [Fatal]

NARRATIVE: CASE EVENT DATE: 20201025
